FAERS Safety Report 10220586 (Version 1)
Quarter: 2014Q2

REPORT INFORMATION
  Report Type: Spontaneous
  Country: US (occurrence: None)
  Receive Date: 20140605
  Receipt Date: 20140605
  Transmission Date: 20141212
  Serious: No
  Sender: FDA-Public Use
  Company Number: None

PATIENT
  Age: 43 Year
  Sex: Male

DRUGS (1)
  1. COLCRYS [Suspect]
     Indication: GOUT
     Dosage: 1 PILL, FOUR TIMES DAILY?
     Dates: start: 20140602, end: 20140604

REACTIONS (1)
  - Oropharyngeal pain [None]
